FAERS Safety Report 17726876 (Version 1)
Quarter: 2020Q2

REPORT INFORMATION
  Report Type: Spontaneous
  Country: JP (occurrence: JP)
  Receive Date: 20200430
  Receipt Date: 20200430
  Transmission Date: 20200714
  Serious: Yes (Life-Threatening, Hospitalization, Other)
  Sender: FDA-Public Use
  Company Number: JP-009507513-2004JPN007769

PATIENT
  Age: 36 Year
  Sex: Female
  Weight: 89 kg

DRUGS (16)
  1. LAMICTAL [Suspect]
     Active Substance: LAMOTRIGINE
     Indication: DEPRESSION
     Dosage: 25 MG, BID
     Route: 048
     Dates: start: 20141215, end: 20150116
  2. TULOBUTEROL HYDROCHLORIDE [Concomitant]
     Active Substance: TULOBUTEROL HYDROCHLORIDE
     Dosage: UNK
  3. LAMICTAL [Suspect]
     Active Substance: LAMOTRIGINE
     Indication: PANIC DISORDER
     Dosage: UNK
  4. TOSUXACIN [Concomitant]
     Dosage: UNK
  5. REFLEX [Suspect]
     Active Substance: MIRTAZAPINE
     Indication: PANIC DISORDER
     Dosage: 7.5 MG, 1D
     Route: 048
     Dates: start: 20141215, end: 20150116
  6. TEGRETOL [Suspect]
     Active Substance: CARBAMAZEPINE
     Indication: PANIC DISORDER
     Dosage: UNK
  7. CARBOCYSTEINE [Concomitant]
     Active Substance: CARBOCYSTEINE
     Dosage: 1500 MG, 1D
  8. [COMPOSITION UNSPECIFIED] [Concomitant]
     Active Substance: UNSPECIFIED INGREDIENT
     Dosage: 1 DF, 1D
  9. BIO-THREE [Concomitant]
     Active Substance: HERBALS
     Dosage: 1 DF, 1D
  10. TEGRETOL [Suspect]
     Active Substance: CARBAMAZEPINE
     Indication: DEPRESSION
     Dosage: 200 MG, BID
     Route: 048
     Dates: start: 20141215, end: 20150116
  11. HALRACK [Concomitant]
     Active Substance: TRIAZOLAM
     Dosage: 0.50 MG, QD
  12. FLUNITRAZEPAM [Concomitant]
     Active Substance: FLUNITRAZEPAM
     Dosage: 2 MG, QD
  13. PAROXETINE HYDROCHLORIDE. [Concomitant]
     Active Substance: PAROXETINE HYDROCHLORIDE
     Dosage: 10 MG, QD
  14. REFLEX [Suspect]
     Active Substance: MIRTAZAPINE
     Indication: DEPRESSION
     Dosage: UNK
  15. CRAVIT [Concomitant]
     Active Substance: LEVOFLOXACIN
     Dosage: 250 MG, QD
  16. NEUZYM [Concomitant]
     Active Substance: LYSOZYME HYDROCHLORIDE
     Dosage: 270 MG, 1D

REACTIONS (52)
  - Pharyngeal oedema [Unknown]
  - Infection [Unknown]
  - Skin discolouration [Unknown]
  - Abdominal tenderness [Unknown]
  - Cough [Unknown]
  - Device related infection [Unknown]
  - Rash papular [Unknown]
  - Lymphocyte morphology abnormal [Unknown]
  - White blood cell count increased [Unknown]
  - Hypovolaemia [Unknown]
  - Clostridium difficile infection [Unknown]
  - Enanthema [Unknown]
  - Tonsillar hypertrophy [Unknown]
  - Urine output decreased [Unknown]
  - Blood lactate dehydrogenase increased [Unknown]
  - Human herpesvirus 6 infection [Unknown]
  - Hyponatraemia [Unknown]
  - Blood osmolarity decreased [Unknown]
  - Coating in mouth [Unknown]
  - Pruritus [Unknown]
  - Abdominal pain lower [Unknown]
  - Hepatomegaly [Unknown]
  - Drug-induced liver injury [Recovering/Resolving]
  - Pyrexia [Recovering/Resolving]
  - Vascular resistance systemic decreased [Unknown]
  - Sputum increased [Unknown]
  - Hepatic function abnormal [Recovering/Resolving]
  - Liver disorder [Unknown]
  - Splenomegaly [Unknown]
  - Pharyngeal erythema [Unknown]
  - Gamma-glutamyltransferase increased [Unknown]
  - Hypomagnesaemia [Unknown]
  - Drug eruption [Recovering/Resolving]
  - Pneumonia [Unknown]
  - Hypoxia [Unknown]
  - Nausea [Unknown]
  - Lymphadenopathy [Unknown]
  - Blood pressure decreased [Unknown]
  - Hypophosphataemia [Unknown]
  - Diarrhoea [Recovering/Resolving]
  - Rash [Recovering/Resolving]
  - Hepatic enzyme increased [Recovering/Resolving]
  - Epstein-Barr virus antibody negative [Unknown]
  - Drug reaction with eosinophilia and systemic symptoms [Recovering/Resolving]
  - Rash [Recovering/Resolving]
  - Inappropriate antidiuretic hormone secretion [Unknown]
  - Purpura [Unknown]
  - Lung infiltration [Unknown]
  - Inflammation [Unknown]
  - Urine osmolarity increased [Unknown]
  - General physical health deterioration [Recovering/Resolving]
  - Vomiting [Unknown]

NARRATIVE: CASE EVENT DATE: 20150106
